FAERS Safety Report 7381575-X (Version None)
Quarter: 2011Q1

REPORT INFORMATION
  Report Type: 
  Country: None (occurrence: None)
  Receive Date: 20110329
  Receipt Date: 20101001
  Transmission Date: 20110831
  Serious: Yes (Other)
  Sender: FDA-Public Use
  Company Number: US-BAYER-201018236NA

PATIENT
  Sex: Female
  Weight: 70.295 kg

DRUGS (6)
  1. NEXIUM [Concomitant]
  2. NSAID'S [Concomitant]
     Dosage: UNK
     Dates: start: 20050101
  3. ALLEGRA [Concomitant]
     Dosage: UNK
     Dates: start: 20010101
  4. YAZ [Suspect]
     Indication: PREMENSTRUAL SYNDROME
     Dosage: UNK UNK, UNK
     Route: 048
     Dates: start: 20070801, end: 20091201
  5. TUMS [CALCIUM CARBONATE] [Concomitant]
  6. VITAMINS NOS [Concomitant]

REACTIONS (6)
  - ABDOMINAL PAIN UPPER [None]
  - GALLBLADDER CHOLESTEROLOSIS [None]
  - CHOLECYSTITIS CHRONIC [None]
  - GALLBLADDER INJURY [None]
  - BILIARY DYSKINESIA [None]
  - POST CHOLECYSTECTOMY SYNDROME [None]
